FAERS Safety Report 22064327 (Version 1)
Quarter: 2023Q1

REPORT INFORMATION
  Report Type: Spontaneous
  Country: US (occurrence: None)
  Receive Date: 20230305
  Receipt Date: 20230305
  Transmission Date: 20230417
  Serious: Yes (Hospitalization, Disabling)
  Sender: FDA-Public Use
  Company Number: None

PATIENT
  Age: 49 Year
  Sex: Female
  Weight: 59.4 kg

DRUGS (1)
  1. DEBROX [Suspect]
     Active Substance: CARBAMIDE PEROXIDE

REACTIONS (5)
  - Ear discomfort [None]
  - Dizziness [None]
  - Facial pain [None]
  - Bell^s palsy [None]
  - Deafness [None]

NARRATIVE: CASE EVENT DATE: 20230303
